FAERS Safety Report 15124913 (Version 1)
Quarter: 2018Q3

REPORT INFORMATION
  Report Type: Spontaneous
  Country: US (occurrence: US)
  Receive Date: 20180710
  Receipt Date: 20180710
  Transmission Date: 20181010
  Serious: No
  Sender: FDA-Public Use
  Company Number: US-ACCORD-065049

PATIENT
  Age: 20 Year
  Sex: Female
  Weight: 74.84 kg

DRUGS (1)
  1. SPIRONOLACTONE ACCORD [Suspect]
     Active Substance: SPIRONOLACTONE
     Indication: PRODUCT USED FOR UNKNOWN INDICATION

REACTIONS (3)
  - Fluid retention [Unknown]
  - Anxiety [Unknown]
  - Product odour abnormal [Unknown]
